FAERS Safety Report 4833220-2 (Version None)
Quarter: 2005Q4

REPORT INFORMATION
  Report Type: 
  Country: None (occurrence: None)
  Receive Date: 20051121
  Receipt Date: 20051116
  Transmission Date: 20060501
  Serious: Yes (Death, Hospitalization)
  Sender: FDA-Public Use
  Company Number: US-JNJFOC-20050801656

PATIENT
  Age: 89 Year
  Sex: Male
  Weight: 81.65 kg

DRUGS (5)
  1. LEVAQUIN [Suspect]
     Indication: DRUG USE FOR UNKNOWN INDICATION
     Route: 048
  2. REMINYL [Concomitant]
     Indication: DEMENTIA
  3. NAMENDA [Concomitant]
     Indication: DEMENTIA
  4. ZYPREXA [Concomitant]
  5. ATIVAN [Concomitant]
     Indication: AGITATION
     Route: 048

REACTIONS (7)
  - DEMENTIA ALZHEIMER'S TYPE [None]
  - DYSPHAGIA [None]
  - SEPSIS [None]
  - SPEECH DISORDER [None]
  - SWOLLEN TONGUE [None]
  - URINARY RETENTION [None]
  - URINARY TRACT INFECTION [None]
